FAERS Safety Report 13894023 (Version 1)
Quarter: 2017Q3

REPORT INFORMATION
  Report Type: Spontaneous
  Country: PL (occurrence: PL)
  Receive Date: 20170822
  Receipt Date: 20170822
  Transmission Date: 20171127
  Serious: Yes (Other)
  Sender: FDA-Public Use
  Company Number: PL-ALLERGAN-1735762US

PATIENT
  Age: 46 Year
  Sex: Female

DRUGS (1)
  1. LEVONORGESTREL - BP [Suspect]
     Active Substance: LEVONORGESTREL
     Indication: CHEMICAL CONTRACEPTION
     Dosage: UNK
     Route: 015
     Dates: start: 20170719, end: 20170802

REACTIONS (2)
  - Salpingitis [Recovered/Resolved]
  - Peritoneal disorder [Recovered/Resolved]

NARRATIVE: CASE EVENT DATE: 20170801
